FAERS Safety Report 7482471-X (Version None)
Quarter: 2011Q2

REPORT INFORMATION
  Report Type: 
  Country: None (occurrence: None)
  Receive Date: 20110516
  Receipt Date: 20110419
  Transmission Date: 20111010
  Serious: Yes (Other)
  Sender: FDA-Public Use
  Company Number: JP-UCBSA-031455

PATIENT
  Age: 30 Year
  Sex: Male

DRUGS (4)
  1. KEPPRA [Suspect]
     Indication: EPILEPSY
     Route: 048
     Dates: start: 20101216, end: 20110410
  2. TOPIRAMATE [Concomitant]
     Route: 048
  3. KEPPRA [Suspect]
     Route: 048
     Dates: start: 20110411
  4. DEPAKENE [Concomitant]
     Route: 048

REACTIONS (1)
  - POSTICTAL PSYCHOSIS [None]
